FAERS Safety Report 16740239 (Version 2)
Quarter: 2019Q3

REPORT INFORMATION
  Report Type: Spontaneous
  Country: JP (occurrence: JP)
  Receive Date: 20190826
  Receipt Date: 20190924
  Transmission Date: 20191005
  Serious: Yes (Hospitalization, Other)
  Sender: FDA-Public Use
  Company Number: GXJP2019JP001523

PATIENT
  Sex: Male
  Weight: 3.46 kg

DRUGS (23)
  1. BROMAZEPAM [Suspect]
     Active Substance: BROMAZEPAM
     Indication: FOETAL EXPOSURE DURING PREGNANCY
     Dosage: MATERNAL DOSE: 17 MG, UNK
     Route: 064
  2. BROMAZEPAM [Suspect]
     Active Substance: BROMAZEPAM
     Dosage: MATERNAL DOSE: 25 MG, UNK
     Route: 064
  3. RISPERIDONE. [Concomitant]
     Active Substance: RISPERIDONE
     Indication: FOETAL EXPOSURE DURING PREGNANCY
     Dosage: MATERNAL DOSE: 1 MG, QD
     Route: 064
  4. RISPERIDONE. [Concomitant]
     Active Substance: RISPERIDONE
     Dosage: MATERNAL DOSE: 9 MG, UNK
     Route: 064
  5. RISPERIDONE. [Concomitant]
     Active Substance: RISPERIDONE
     Dosage: MATERNAL DOSE: 5 MG, UNK
     Route: 064
  6. BIPERIDEN [Concomitant]
     Active Substance: BIPERIDEN
     Dosage: MATERNAL DOSE: 16 MG, UNK
     Route: 064
  7. CHLORPROMAZINE HYDROCHLORIDE. [Concomitant]
     Active Substance: CHLORPROMAZINE HYDROCHLORIDE
     Indication: FOETAL EXPOSURE DURING PREGNANCY
     Dosage: MATERNAL DOSE: UNK
     Route: 064
  8. CHLORPROMAZINE HYDROCHLORIDE. [Concomitant]
     Active Substance: CHLORPROMAZINE HYDROCHLORIDE
     Dosage: MATERNAL DOSE: UNK UNK, PRN
     Route: 064
  9. FLUNITRAZEPAM [Concomitant]
     Active Substance: FLUNITRAZEPAM
     Dosage: MATERNAL DOSE: 13 MG, UNK
     Route: 064
  10. FLUNITRAZEPAM [Concomitant]
     Active Substance: FLUNITRAZEPAM
     Dosage: MATERNAL DOSE: 18 MG, UNK
     Route: 064
  11. BIPERIDEN [Concomitant]
     Active Substance: BIPERIDEN
     Dosage: MATERNAL DOSE: 11 MG, UNK
     Route: 064
  12. ZOLPIDEM [Suspect]
     Active Substance: ZOLPIDEM TARTRATE
     Indication: FOETAL EXPOSURE DURING PREGNANCY
     Dosage: MATERNAL DOSE: 10 MG, QD
     Route: 064
  13. BROMAZEPAM [Suspect]
     Active Substance: BROMAZEPAM
     Dosage: MATERNAL DOSE: 28 MG, UNK
     Route: 064
  14. FLUNITRAZEPAM [Concomitant]
     Active Substance: FLUNITRAZEPAM
     Indication: FOETAL EXPOSURE DURING PREGNANCY
     Dosage: MATERNAL DOSE: 10 MG, QD
     Route: 064
  15. BROMAZEPAM [Suspect]
     Active Substance: BROMAZEPAM
     Dosage: MATERNAL DOSE: 19 MG, UNK
     Route: 064
  16. RISPERIDONE. [Concomitant]
     Active Substance: RISPERIDONE
     Dosage: MATERNAL DOSE: 3 MG, QD
     Route: 064
  17. BIPERIDEN [Concomitant]
     Active Substance: BIPERIDEN
     Dosage: MATERNAL DOSE: 13 MG, UNK
     Route: 064
  18. BROMAZEPAM [Suspect]
     Active Substance: BROMAZEPAM
     Dosage: MATERNAL DOSE: 21 MG, UNK
     Route: 064
  19. FLUNITRAZEPAM [Concomitant]
     Active Substance: FLUNITRAZEPAM
     Dosage: MATERNAL DOSE: 11 MG, UNK
     Route: 064
  20. RISPERIDONE. [Concomitant]
     Active Substance: RISPERIDONE
     Dosage: MATERNAL DOSE: 4 MG, UNK
     Route: 064
  21. RISPERIDONE. [Concomitant]
     Active Substance: RISPERIDONE
     Dosage: MATERNAL DOSE: 7 MG, UNK
     Route: 064
  22. RISPERIDONE. [Concomitant]
     Active Substance: RISPERIDONE
     Dosage: MATERNAL DOSE: 11 MG, UNK
     Route: 064
  23. BIPERIDEN [Concomitant]
     Active Substance: BIPERIDEN
     Indication: FOETAL EXPOSURE DURING PREGNANCY
     Dosage: MATERNAL DOSE: 9 MG, UNK
     Route: 064

REACTIONS (4)
  - Hypotonia [Unknown]
  - Somnolence [Unknown]
  - Foetal exposure during pregnancy [Unknown]
  - Neonatal asphyxia [Unknown]
